FAERS Safety Report 5350932-5 (Version None)
Quarter: 2007Q2

REPORT INFORMATION
  Report Type: 
  Country: None (occurrence: None)
  Receive Date: 20070608
  Receipt Date: 20070530
  Transmission Date: 20071010
  Serious: Yes (Hospitalization)
  Sender: FDA-Public Use
  Company Number: US-JNJFOC-20070601445

PATIENT
  Sex: Female

DRUGS (6)
  1. LEVAQUIN [Suspect]
     Route: 042
  2. LEVAQUIN [Suspect]
     Indication: PNEUMONIA
     Route: 042
  3. ROCEPHIN [Suspect]
     Route: 042
  4. ROCEPHIN [Suspect]
     Indication: PNEUMONIA
     Route: 042
  5. ZITHROMAX [Suspect]
     Route: 042
  6. ZITHROMAX [Suspect]
     Indication: PNEUMONIA
     Route: 042

REACTIONS (1)
  - WHITE BLOOD CELL COUNT INCREASED [None]
